FAERS Safety Report 6856760-3 (Version None)
Quarter: 2010Q3

REPORT INFORMATION
  Report Type: 
  Country: None (occurrence: None)
  Receive Date: 20100719
  Receipt Date: 20100709
  Transmission Date: 20110219
  Serious: Yes (Other)
  Sender: FDA-Public Use
  Company Number: US-JNJCH-2010016442

PATIENT
  Age: 35 Year
  Sex: Female
  Weight: 83.5 kg

DRUGS (1)
  1. LUBRIDERM SENSITIVE SKIN THERAPY [Suspect]
     Indication: ECZEMA
     Dosage: TEXT:TWO SQUIRTS THREE TIMES
     Route: 061
     Dates: start: 20100706, end: 20100708

REACTIONS (4)
  - APPLICATION SITE PAIN [None]
  - APPLICATION SITE VESICLES [None]
  - OFF LABEL USE [None]
  - SKIN DISORDER [None]
